FAERS Safety Report 5842573-8 (Version None)
Quarter: 2008Q3

REPORT INFORMATION
  Report Type: 
  Country: None (occurrence: None)
  Receive Date: 20080812
  Receipt Date: 20080731
  Transmission Date: 20090109
  Serious: Yes (Other)
  Sender: FDA-Public Use
  Company Number: GB-PFIZER INC-2008065073

PATIENT
  Age: 29 Year
  Sex: Female

DRUGS (6)
  1. CHANTIX [Suspect]
     Indication: SMOKING CESSATION THERAPY
     Route: 048
     Dates: start: 20080707, end: 20080711
  2. BETNOVATE [Concomitant]
     Route: 061
  3. CERAZETTE [Concomitant]
  4. DIAZEPAM [Concomitant]
     Route: 048
     Dates: start: 20080401, end: 20080406
  5. NORINYL 1+35 28-DAY [Concomitant]
     Route: 048
  6. OILATUM PLUS [Concomitant]
     Route: 061

REACTIONS (3)
  - ANXIETY [None]
  - DEPRESSED MOOD [None]
  - SELF-INJURIOUS IDEATION [None]
